FAERS Safety Report 18480257 (Version 2)
Quarter: 2020Q4

REPORT INFORMATION
  Report Type: Report from Study
  Country: SI (occurrence: SI)
  Receive Date: 20201109
  Receipt Date: 20201216
  Transmission Date: 20210114
  Serious: Yes (Other)
  Sender: FDA-Public Use
  Company Number: NVSC2020SI018394

PATIENT
  Age: 59 Year
  Sex: Female
  Weight: 90 kg

DRUGS (10)
  1. INC280 [Suspect]
     Active Substance: CAPMATINIB
     Indication: LUNG ADENOCARCINOMA
     Dosage: 800 MG
     Route: 050
     Dates: start: 20191216, end: 20200106
  2. INC280 [Suspect]
     Active Substance: CAPMATINIB
     Dosage: 800 MG
     Route: 050
     Dates: start: 20200114
  3. DIAPREL [Concomitant]
     Active Substance: GLICLAZIDE
     Indication: PRODUCT USED FOR UNKNOWN INDICATION
     Dosage: 60 MG
     Route: 065
  4. GLUCOPHAGE [Concomitant]
     Active Substance: METFORMIN HYDROCHLORIDE
     Indication: PRODUCT USED FOR UNKNOWN INDICATION
     Dosage: 2000 MG
     Route: 065
  5. CONCOR [Concomitant]
     Active Substance: BISOPROLOL FUMARATE
     Indication: PRODUCT USED FOR UNKNOWN INDICATION
     Dosage: 2.5 MG
     Route: 065
  6. PRENEWEL [Concomitant]
     Active Substance: INDAPAMIDE\PERINDOPRIL ERBUMINE
     Indication: PRODUCT USED FOR UNKNOWN INDICATION
     Dosage: (2/6.25 MG)
     Route: 065
  7. INC280 [Suspect]
     Active Substance: CAPMATINIB
     Dosage: 600 MG
     Route: 048
     Dates: start: 20200320
  8. ISOPHANE INSULIN [Concomitant]
     Active Substance: INSULIN NOS
     Indication: PRODUCT USED FOR UNKNOWN INDICATION
     Route: 065
  9. INC280 [Suspect]
     Active Substance: CAPMATINIB
     Dosage: 800 MG
     Route: 048
     Dates: end: 20200320
  10. MILGAMMA [Concomitant]
     Indication: PRODUCT USED FOR UNKNOWN INDICATION
     Dosage: 100 MG
     Route: 065

REACTIONS (6)
  - Oedema peripheral [Not Recovered/Not Resolved]
  - Aspartate aminotransferase increased [Recovered/Resolved]
  - Hepatotoxicity [Recovered/Resolved]
  - Fatigue [Not Recovered/Not Resolved]
  - Alanine aminotransferase increased [Recovered/Resolved]
  - Blood creatinine increased [Not Recovered/Not Resolved]

NARRATIVE: CASE EVENT DATE: 20200106
